FAERS Safety Report 7404278 (Version 3)
Quarter: 2016Q2

REPORT INFORMATION
  Report Type: Report from Study
  Country: CZ (occurrence: CZ)
  Receive Date: 20100528
  Receipt Date: 20160509
  Transmission Date: 20160815
  Serious: Yes (Hospitalization)
  Sender: FDA-Public Use
  Company Number: PHHO2010CZ06341

PATIENT
  Age: 61 Year
  Sex: Male
  Weight: 75 kg

DRUGS (5)
  1. ALISKIREN [Suspect]
     Active Substance: ALISKIREN
     Dosage: RUN IN PHASE
     Route: 048
  2. ACE INHIBITOR NOS [Suspect]
     Active Substance: UNSPECIFIED INGREDIENT
  3. ENALAPRIL [Suspect]
     Active Substance: ENALAPRIL
     Indication: CARDIAC FAILURE
     Dosage: RUN IN PHASE
     Route: 048
  4. ENALAPRIL [Suspect]
     Active Substance: ENALAPRIL
     Dosage: 10 MG, BID
     Route: 048
     Dates: start: 20091021, end: 20100423
  5. ALISKIREN [Suspect]
     Active Substance: ALISKIREN
     Dosage: 300 MG, UNK
     Route: 048
     Dates: start: 20091021, end: 20100423

REACTIONS (3)
  - Vertigo [Recovered/Resolved]
  - Chronic kidney disease [Recovered/Resolved]
  - Renal artery stenosis [Recovered/Resolved]

NARRATIVE: CASE EVENT DATE: 20040220
